FAERS Safety Report 6159284-4 (Version None)
Quarter: 2009Q2

REPORT INFORMATION
  Report Type: 
  Country: None (occurrence: None)
  Receive Date: 20090414
  Receipt Date: 20090406
  Transmission Date: 20091009
  Serious: No
  Sender: FDA-Public Use
  Company Number: 2009-189573-NL

PATIENT
  Age: 35 Year
  Sex: Female

DRUGS (1)
  1. ETONOGESTREL [Suspect]
     Dosage: DF
     Dates: start: 20081223

REACTIONS (10)
  - ABDOMINAL PAIN UPPER [None]
  - ANXIETY [None]
  - BACK PAIN [None]
  - CHEST PAIN [None]
  - COUGH [None]
  - HEADACHE [None]
  - HYPERHIDROSIS [None]
  - MOOD SWINGS [None]
  - NIGHT SWEATS [None]
  - PARAESTHESIA [None]
